FAERS Safety Report 16548587 (Version 2)
Quarter: 2019Q3

REPORT INFORMATION
  Report Type: Report from Study
  Country: US (occurrence: US)
  Receive Date: 20190709
  Receipt Date: 20190712
  Transmission Date: 20191004
  Serious: Yes (Hospitalization)
  Sender: FDA-Public Use
  Company Number: US-GILEAD-2019-0411769

PATIENT
  Age: 13 Year
  Sex: Female
  Weight: 31.6 kg

DRUGS (7)
  1. AMBRISENTAN [Suspect]
     Active Substance: AMBRISENTAN
     Indication: PULMONARY HYPERTENSION
     Dosage: 5 MG, QD
     Route: 048
     Dates: start: 20180315
  2. TADALAFIL. [Concomitant]
     Active Substance: TADALAFIL
  3. ADCIRCA [Concomitant]
     Active Substance: TADALAFIL
  4. KEPPRA [Concomitant]
     Active Substance: LEVETIRACETAM
  5. ORENITRAM [Concomitant]
     Active Substance: TREPROSTINIL
  6. ZOLOFT [Concomitant]
     Active Substance: SERTRALINE HYDROCHLORIDE
  7. FUROSEMIDE. [Concomitant]
     Active Substance: FUROSEMIDE

REACTIONS (4)
  - Food intolerance [Unknown]
  - Retching [Recovered/Resolved]
  - Sinusitis [Recovered/Resolved]
  - Off label use [Not Recovered/Not Resolved]

NARRATIVE: CASE EVENT DATE: 20180315
